FAERS Safety Report 8186509-6 (Version None)
Quarter: 2012Q1

REPORT INFORMATION
  Report Type: 
  Country: None (occurrence: None)
  Receive Date: 20120306
  Receipt Date: 20120222
  Transmission Date: 20120608
  Serious: Yes (Death)
  Sender: FDA-Public Use
  Company Number: AU-GENZYME-FABR-1002369

PATIENT
  Sex: Female
  Weight: 73.1 kg

DRUGS (4)
  1. ONDANSETRON [Concomitant]
     Indication: NAUSEA
     Dosage: 8 MG, QD
     Dates: start: 20101201
  2. PREDNISONE [Concomitant]
     Indication: PRODUCT USED FOR UNKNOWN INDICATION
     Dosage: 20 MG, QD
     Dates: start: 20100701, end: 20100801
  3. FABRAZYME [Suspect]
     Dosage: UNK
     Route: 036
     Dates: end: 20101201
  4. ASPIRIN [Concomitant]
     Indication: THROMBOSIS PROPHYLAXIS
     Dosage: UNK
     Dates: start: 20090101

REACTIONS (1)
  - DEATH [None]
